FAERS Safety Report 8311768-6 (Version None)
Quarter: 2012Q2

REPORT INFORMATION
  Report Type: 
  Country: None (occurrence: None)
  Receive Date: 20120425
  Receipt Date: 20120417
  Transmission Date: 20120825
  Serious: No
  Sender: FDA-Public Use
  Company Number: US-BAYER-2012-038612

PATIENT
  Age: 77 Year
  Sex: Female

DRUGS (1)
  1. ESTRADIOL [Suspect]
     Dosage: DAILY DOSE .05 MG
     Route: 062
     Dates: start: 20120301

REACTIONS (2)
  - NIGHT SWEATS [None]
  - HOT FLUSH [None]
